FAERS Safety Report 6732702-6 (Version None)
Quarter: 2010Q2

REPORT INFORMATION
  Report Type: 
  Country: None (occurrence: None)
  Receive Date: 20100519
  Receipt Date: 20100510
  Transmission Date: 20101027
  Serious: Yes (Hospitalization)
  Sender: FDA-Public Use
  Company Number: NL-AMGEN-US404494

PATIENT
  Age: 38 Year
  Sex: Male
  Weight: 110 kg

DRUGS (2)
  1. ENBREL [Suspect]
     Indication: PSORIATIC ARTHROPATHY
     Route: 058
     Dates: start: 20091201
  2. BUDESONIDE [Concomitant]

REACTIONS (4)
  - BURSITIS INFECTIVE [None]
  - OPEN WOUND [None]
  - SKIN INFECTION [None]
  - WOUND INFECTION [None]
